FAERS Safety Report 9604603 (Version 1)
Quarter: 2013Q4

REPORT INFORMATION
  Report Type: Spontaneous
  Country: BR (occurrence: BR)
  Receive Date: 20131008
  Receipt Date: 20131008
  Transmission Date: 20140711
  Serious: Yes (Other)
  Sender: FDA-Public Use
  Company Number: BR-PFIZER INC-2013280926

PATIENT
  Age: 86 Year
  Sex: Male
  Weight: 64 kg

DRUGS (2)
  1. VIAGRA [Suspect]
     Dosage: 1 TABLET (50 MG), 1X/DAY
     Route: 048
     Dates: start: 20080519
  2. SYSTANE [Concomitant]
     Indication: EYE DISORDER
     Dosage: 1 DROP EACH EYE, EVERY 12 HOURS
     Route: 047
     Dates: start: 2011

REACTIONS (2)
  - Cataract [Unknown]
  - Glaucoma [Not Recovered/Not Resolved]
